FAERS Safety Report 15189756 (Version 1)
Quarter: 2018Q3

REPORT INFORMATION
  Report Type: Spontaneous
  Country: ET (occurrence: ET)
  Receive Date: 20180724
  Receipt Date: 20180724
  Transmission Date: 20181010
  Serious: Yes (Death)
  Sender: FDA-Public Use
  Company Number: ET-PFIZER INC-2018294231

PATIENT
  Age: 58 Year
  Sex: Male

DRUGS (18)
  1. VANCOMYCIN [Suspect]
     Active Substance: VANCOMYCIN
     Indication: SYSTEMIC CANDIDA
  2. AMPHOTERICIN B. [Suspect]
     Active Substance: AMPHOTERICIN B
     Indication: ACUTE RESPIRATORY DISTRESS SYNDROME
  3. MEROPENEM. [Suspect]
     Active Substance: MEROPENEM
     Indication: SYSTEMIC CANDIDA
  4. VANCOMYCIN [Suspect]
     Active Substance: VANCOMYCIN
     Indication: PNEUMONIA
  5. CIPROFLOXACIN. [Suspect]
     Active Substance: CIPROFLOXACIN
     Indication: FEBRILE NEUTROPENIA
     Dosage: UNK
  6. MEROPENEM. [Suspect]
     Active Substance: MEROPENEM
     Indication: PNEUMONIA
  7. VANCOMYCIN [Suspect]
     Active Substance: VANCOMYCIN
     Indication: ACUTE RESPIRATORY DISTRESS SYNDROME
  8. CIPROFLOXACIN. [Suspect]
     Active Substance: CIPROFLOXACIN
     Indication: SYSTEMIC CANDIDA
  9. AMPHOTERICIN B. [Suspect]
     Active Substance: AMPHOTERICIN B
     Indication: FEBRILE NEUTROPENIA
     Dosage: UNK
  10. AMPHOTERICIN B. [Suspect]
     Active Substance: AMPHOTERICIN B
     Indication: PNEUMONIA
  11. VANCOMYCIN [Suspect]
     Active Substance: VANCOMYCIN
     Indication: FEBRILE NEUTROPENIA
     Dosage: UNK
  12. ALLOPURINOL. [Suspect]
     Active Substance: ALLOPURINOL
     Dosage: UNK
  13. CIPROFLOXACIN. [Suspect]
     Active Substance: CIPROFLOXACIN
     Indication: PNEUMONIA
  14. CIPROFLOXACIN. [Suspect]
     Active Substance: CIPROFLOXACIN
     Indication: ACUTE RESPIRATORY DISTRESS SYNDROME
  15. MEROPENEM. [Suspect]
     Active Substance: MEROPENEM
     Indication: FEBRILE NEUTROPENIA
     Dosage: UNK
  16. AMPHOTERICIN B. [Suspect]
     Active Substance: AMPHOTERICIN B
     Indication: SYSTEMIC CANDIDA
  17. MEROPENEM. [Suspect]
     Active Substance: MEROPENEM
     Indication: ACUTE RESPIRATORY DISTRESS SYNDROME
  18. HYDROXYUREA. [Suspect]
     Active Substance: HYDROXYUREA
     Dosage: UNK

REACTIONS (1)
  - Drug ineffective [Fatal]
